FAERS Safety Report 4321116-4 (Version None)
Quarter: 2004Q1

REPORT INFORMATION
  Report Type: 
  Country: None (occurrence: None)
  Receive Date: 20040322
  Receipt Date: 20040212
  Transmission Date: 20041129
  Serious: Yes (Other)
  Sender: FDA-Public Use
  Company Number: FR-GLAXOSMITHKLINE-B0323573A

PATIENT
  Age: 32 Year
  Sex: Male
  Weight: 72 kg

DRUGS (2)
  1. ZYBAN [Suspect]
     Indication: EX-SMOKER
     Dosage: 150MG TWICE PER DAY
     Route: 048
     Dates: start: 20031101, end: 20031201
  2. EUPHYTOSE [Concomitant]
     Indication: IRRITABILITY
     Dosage: 2UNIT THREE TIMES PER DAY
     Route: 048
     Dates: start: 20031101, end: 20040201

REACTIONS (1)
  - VISUAL ACUITY REDUCED [None]
